FAERS Safety Report 24613651 (Version 1)
Quarter: 2024Q4

REPORT INFORMATION
  Report Type: Spontaneous
  Country: US (occurrence: None)
  Receive Date: 20241113
  Receipt Date: 20241113
  Transmission Date: 20250115
  Serious: Yes (Life-Threatening)
  Sender: Public
  Company Number: None

PATIENT
  Age: 75 Year
  Sex: Female
  Weight: 83.7 kg

DRUGS (1)
  1. BENZONATATE [Suspect]
     Active Substance: BENZONATATE
     Indication: Viral infection
     Dates: start: 20241102, end: 20241102

REACTIONS (2)
  - Laryngospasm [None]
  - Dyspnoea [None]

NARRATIVE: CASE EVENT DATE: 20241103
